FAERS Safety Report 7476405-1 (Version None)
Quarter: 2011Q2

REPORT INFORMATION
  Report Type: 
  Country: None (occurrence: None)
  Receive Date: 20110512
  Receipt Date: 20101020
  Transmission Date: 20111010
  Serious: No
  Sender: FDA-Public Use
  Company Number: DE-ELI_LILLY_AND_COMPANY-DE201010004751

PATIENT
  Age: 61 Year
  Sex: Female

DRUGS (7)
  1. PANTOPRAZOL [Concomitant]
     Dosage: UNK, UNKNOWN
     Route: 065
  2. SIMVASTATIN [Concomitant]
     Dosage: UNK, UNKNOWN
     Route: 065
  3. NOVALGINE [Concomitant]
  4. DEKRISTOL [Concomitant]
     Dosage: UNK, UNKNOWN
     Route: 065
  5. FORTEO [Suspect]
     Indication: OSTEOPOROSIS
     Dosage: UNK, UNKNOWN
     Route: 058
     Dates: start: 20100809
  6. LEVOTHYROXINE SODIUM [Concomitant]
     Dosage: UNK, UNKNOWN
     Route: 065
  7. PROPRANOLOL HCL RATIOPHARM [Concomitant]
     Dosage: UNK, UNKNOWN
     Route: 065

REACTIONS (7)
  - MYALGIA [None]
  - REFLUX OESOPHAGITIS [None]
  - ARTHRITIS REACTIVE [None]
  - INFECTION [None]
  - ARTHRALGIA [None]
  - VOCAL CORD DISORDER [None]
  - WEIGHT INCREASED [None]
